FAERS Safety Report 5625264-8 (Version None)
Quarter: 2008Q1

REPORT INFORMATION
  Report Type: 
  Country: None (occurrence: None)
  Receive Date: 20080213
  Receipt Date: 20080130
  Transmission Date: 20080703
  Serious: Yes (Death)
  Sender: FDA-Public Use
  Company Number: CL-GENENTECH-255550

PATIENT
  Age: 54 Year
  Sex: Female
  Weight: 60 kg

DRUGS (3)
  1. HERCEPTIN [Suspect]
     Indication: BREAST CANCER METASTATIC
     Dosage: 240 MG, UNK
     Route: 042
     Dates: start: 20071124
  2. HERCEPTIN [Suspect]
     Dosage: 120 MG, UNK
     Dates: start: 20071215
  3. HERCEPTIN [Suspect]
     Dosage: 360 MG, UNK
     Dates: start: 20071226

REACTIONS (5)
  - INFLAMMATION [None]
  - LOSS OF CONSCIOUSNESS [None]
  - MALAISE [None]
  - NAUSEA [None]
  - SOMNOLENCE [None]
